FAERS Safety Report 10544323 (Version 2)
Quarter: 2014Q4

REPORT INFORMATION
  Report Type: Spontaneous
  Country: US (occurrence: None)
  Receive Date: 20141010
  Receipt Date: 20141205
  Transmission Date: 20150529
  Serious: No
  Sender: FDA-Public Use
  Company Number: 163-POMAL-14073594

PATIENT
  Sex: Female
  Weight: 66.68 kg

DRUGS (13)
  1. TOVIAZ ER (FESOTERODINE FUMARATE) (UNKNOWN) [Concomitant]
  2. VESICARE (SOLIFENACIN SUCCINATE) (UNKNOWN) [Concomitant]
  3. OMEPRAZOLE. [Suspect]
     Active Substance: OMEPRAZOLE
  4. MULTIVITAMINS [Concomitant]
     Active Substance: VITAMINS
  5. CETIRIZINE [Concomitant]
     Active Substance: CETIRIZINE HYDROCHLORIDE
  6. MONTELUKAST [Concomitant]
     Active Substance: MONTELUKAST SODIUM
  7. DEXAMETHASONE (DEXAMETHASONE) (UNKNOWN) [Suspect]
     Active Substance: DEXAMETHASONE
     Indication: PRODUCT USED FOR UNKNOWN INDICATION
  8. POMALYST [Suspect]
     Active Substance: POMALIDOMIDE
     Indication: PLASMA CELL MYELOMA
     Dosage: 4 MG, 21 IN 21 D, PO
     Route: 048
     Dates: start: 20130806
  9. AMOXICILLIN. [Concomitant]
     Active Substance: AMOXICILLIN
  10. AMLODIPINE [Concomitant]
     Active Substance: AMLODIPINE BESYLATE
  11. CALCITRATE (CALCIUM) (UNKNOWN) [Concomitant]
  12. ZOMETA [Concomitant]
     Active Substance: ZOLEDRONIC ACID
  13. ASPRIN [Concomitant]
     Active Substance: ASPIRIN

REACTIONS (6)
  - Nasopharyngitis [None]
  - Hypertonic bladder [None]
  - Pain in extremity [None]
  - Erythema [None]
  - Multiple allergies [None]
  - Peripheral swelling [None]
